FAERS Safety Report 8896722 (Version 1)
Quarter: 2012Q4

REPORT INFORMATION
  Report Type: 
  Country: US (occurrence: US)
  Receive Date: 20121108
  Receipt Date: 20121108
  Transmission Date: 20130627
  Serious: No
  Sender: FDA-Public Use
  Company Number: US-AMGEN-USASP2012028438

PATIENT
  Age: 62 Year
  Sex: Female
  Weight: 53.52 kg

DRUGS (20)
  1. ENBREL [Suspect]
     Indication: RHEUMATOID ARTHRITIS
     Dosage: 50 mg, qwk
     Route: 058
  2. PLAVIX [Concomitant]
     Dosage: 75 mg, UNK
     Route: 048
  3. PLETAL [Concomitant]
     Dosage: 100 mg, UNK
     Route: 048
  4. SYMBICORT [Concomitant]
     Dosage: UNK
  5. SPIRIVA HANDIHALER [Concomitant]
     Dosage: UNK
  6. BABY ASPIRIN [Concomitant]
     Dosage: 81 mg, UNK
     Route: 048
  7. CALCIUM [Concomitant]
     Dosage: UNK
     Route: 048
  8. VITAMIN D3 [Concomitant]
     Dosage: UNK
     Route: 048
  9. VITAMIN A /00056001/ [Concomitant]
     Dosage: UNK
     Route: 048
  10. CARDIZEM CD [Concomitant]
     Dosage: UNK
     Route: 048
  11. MIRALAX                            /06344701/ [Concomitant]
     Dosage: UNK
     Route: 048
  12. ZOCOR [Concomitant]
     Dosage: 20 mg, UNK
     Route: 048
  13. FOLIC ACID [Concomitant]
     Dosage: 1 mg, UNK
     Route: 048
  14. CELEBREX [Concomitant]
     Dosage: 100 mg, UNK
     Route: 048
  15. PREVACID [Concomitant]
     Dosage: 30 mg, UNK
     Route: 048
  16. LEXAPRO [Concomitant]
     Dosage: 20 mg, UNK
     Route: 048
  17. TRAMADOL HCL [Concomitant]
     Dosage: 50 mg, UNK
     Route: 048
  18. FLONASE [Concomitant]
     Dosage: 0.05 %, UNK
  19. HYDROXYZINE HCL [Concomitant]
     Dosage: 10 mg, UNK
     Route: 048
  20. ZYRTEC [Concomitant]
     Dosage: 10 mg, UNK
     Route: 048

REACTIONS (1)
  - Pneumonia [Recovered/Resolved]
